FAERS Safety Report 15878344 (Version 2)
Quarter: 2019Q1

REPORT INFORMATION
  Report Type: Spontaneous
  Country: US (occurrence: US)
  Receive Date: 20190128
  Receipt Date: 20190312
  Transmission Date: 20190417
  Serious: No
  Sender: FDA-Public Use
  Company Number: US-PFIZER INC-2019032820

PATIENT
  Sex: Female

DRUGS (2)
  1. WAL ITIN [Suspect]
     Active Substance: LORATADINE
  2. ADVIL SINUS CONGESTION AND PAIN [Suspect]
     Active Substance: IBUPROFEN\PHENYLEPHRINE HYDROCHLORIDE
     Dosage: 1 DF, EVERY 4 HRS

REACTIONS (1)
  - Drug ineffective [Unknown]
